FAERS Safety Report 5385781-5 (Version None)
Quarter: 2007Q3

REPORT INFORMATION
  Report Type: 
  Country: None (occurrence: None)
  Receive Date: 20070712
  Receipt Date: 20070711
  Transmission Date: 20080115
  Serious: Yes (Other)
  Sender: FDA-Public Use
  Company Number: CA-ASTRAZENECA-2007UW13283

PATIENT
  Age: 71 Year
  Sex: Male

DRUGS (1)
  1. SYMBICORT [Suspect]
     Indication: ASTHMA
     Dosage: 200 UG
     Route: 055

REACTIONS (3)
  - DEVICE MALFUNCTION [None]
  - DRUG INEFFECTIVE [None]
  - LUNG INFECTION [None]
